FAERS Safety Report 16311417 (Version 1)
Quarter: 2019Q2

REPORT INFORMATION
  Report Type: Spontaneous
  Country: AT (occurrence: AT)
  Receive Date: 20190514
  Receipt Date: 20190514
  Transmission Date: 20190711
  Serious: Yes (Death, Other)
  Sender: FDA-Public Use
  Company Number: AT-ELI_LILLY_AND_COMPANY-AT200512002651

PATIENT
  Age: 9 Year
  Sex: Female

DRUGS (2)
  1. HUMATROPE [Suspect]
     Active Substance: SOMATROPIN
     Indication: PRADER-WILLI SYNDROME
     Dosage: 0.28 MG/KG, WEEKLY (1/W)
  2. HUMATROPE [Suspect]
     Active Substance: SOMATROPIN
     Dosage: 0.14 MG/KG, WEEKLY (1/W)

REACTIONS (4)
  - Respiratory tract infection [Fatal]
  - Tonsillar hypertrophy [Unknown]
  - Mobility decreased [Not Recovered/Not Resolved]
  - General physical health deterioration [Not Recovered/Not Resolved]
